FAERS Safety Report 8903394 (Version 1)
Quarter: 2012Q4

REPORT INFORMATION
  Report Type: 
  Country: US (occurrence: US)
  Receive Date: 20121111
  Receipt Date: 20121111
  Transmission Date: 20130627
  Serious: Yes (Hospitalization)
  Sender: FDA-Public Use
  Company Number: US-BAYER-2012-102881

PATIENT
  Age: 70 Year
  Sex: Female
  Weight: 85.3 kg

DRUGS (7)
  1. XARELTO [Suspect]
     Indication: ATRIAL FIBRILLATION
     Dosage: 15 mg, QD
     Route: 048
     Dates: start: 20120410
  2. XARELTO [Interacting]
     Indication: CEREBROVASCULAR ACCIDENT PROPHYLAXIS
  3. ACETYLSALICYLIC ACID({=100 MG) [Interacting]
     Indication: DRUG USE FOR UNKNOWN INDICATION
     Dosage: 81 mg, UNK
     Route: 048
     Dates: start: 20111215, end: 20121001
  4. DRONEDARONE [Concomitant]
     Dosage: 400 mg, QD
     Route: 048
     Dates: start: 20120410
  5. METOPROLOL [Concomitant]
     Dosage: 50 mg, QD
     Route: 048
     Dates: start: 20120605
  6. LISINOPRIL [Concomitant]
     Dosage: 30 mg, QD
     Route: 048
     Dates: start: 20111215
  7. HYDROCHLOROTHIAZIDE [Concomitant]
     Dosage: 25 mg, QD
     Route: 048
     Dates: start: 20080320

REACTIONS (4)
  - Lip haemorrhage [Recovered/Resolved]
  - International normalised ratio increased [Unknown]
  - Activated partial thromboplastin time prolonged [None]
  - Prothrombin time prolonged [None]
